FAERS Safety Report 8525563-6 (Version None)
Quarter: 2012Q3

REPORT INFORMATION
  Report Type: 
  Country: None (occurrence: None)
  Receive Date: 20120720
  Receipt Date: 20120712
  Transmission Date: 20120928
  Serious: No
  Sender: FDA-Public Use
  Company Number: US-009507513-1207USA003799

PATIENT

DRUGS (1)
  1. SINGULAIR [Suspect]
     Indication: HYPERSENSITIVITY
     Dosage: UNK
     Route: 048
     Dates: start: 20120711, end: 20120712

REACTIONS (5)
  - ERYTHEMA [None]
  - OEDEMA PERIPHERAL [None]
  - URTICARIA [None]
  - THROAT TIGHTNESS [None]
  - PRURITUS [None]
